FAERS Safety Report 6772616 (Version 3)
Quarter: 2013Q1

REPORT INFORMATION
  Report Type: Other
  Country: US (occurrence: US)
  Receive Date: 20080926
  Receipt Date: 20130115
  Transmission Date: 20140127
  Serious: Yes (Hospitalization, Other)
  Sender: FDA-Public Use
  Company Number: US-RB-004310-08

PATIENT
  Sex: 0

DRUGS (2)
  1. BUPRENORPHINE [Suspect]
     Route: 060
  2. BUPRENORPHINE [Suspect]
     Indication: DRUG WITHDRAWAL SYNDROME NEONATAL
     Dosage: RECEIVED 4 UP-TITRATIONS (SPECIFIC DOSES UNKNOWN)
     Route: 060

REACTIONS (3)
  - Convulsion [Recovered/Resolved]
  - Subdural haemorrhage [Recovered/Resolved]
  - Off label use [Recovered/Resolved]
